FAERS Safety Report 19053857 (Version 1)
Quarter: 2021Q1

REPORT INFORMATION
  Report Type: Spontaneous
  Country: US (occurrence: US)
  Receive Date: 20210324
  Receipt Date: 20210324
  Transmission Date: 20210420
  Serious: No
  Sender: FDA-Public Use
  Company Number: US-TAKEDA-2021TUS018535

PATIENT
  Sex: Male
  Weight: 20.86 kg

DRUGS (13)
  1. ACETAMINOPHEN. [Concomitant]
     Active Substance: ACETAMINOPHEN
  2. TYLENOL [Concomitant]
     Active Substance: ACETAMINOPHEN
  3. CUVITRU [Suspect]
     Active Substance: HUMAN IMMUNOGLOBULIN G
     Indication: CONGENITAL HYPOGAMMAGLOBULINAEMIA
     Dosage: 2 GRAM, 1/WEEK
     Route: 058
     Dates: start: 20210204
  4. SULFATRIM [SULFADIAZINE;TRIMETHOPRIM] [Concomitant]
     Active Substance: SULFADIAZINE\TRIMETHOPRIM
  5. MOMETASONE FUROATE. [Concomitant]
     Active Substance: MOMETASONE FUROATE
  6. DIPHENHYDRAMINE. [Concomitant]
     Active Substance: DIPHENHYDRAMINE
  7. VALACYCLOVIR [Concomitant]
     Active Substance: VALACYCLOVIR HYDROCHLORIDE
  8. MUPIROCIN. [Concomitant]
     Active Substance: MUPIROCIN
  9. CUVITRU [Suspect]
     Active Substance: HUMAN IMMUNOGLOBULIN G
     Indication: IMMUNODEFICIENCY
  10. LIDOCAINE. [Concomitant]
     Active Substance: LIDOCAINE
  11. EPINEPHRINE. [Concomitant]
     Active Substance: EPINEPHRINE
  12. PANTOPRAZOLE SODIUM. [Concomitant]
     Active Substance: PANTOPRAZOLE SODIUM
  13. LORATADINE. [Concomitant]
     Active Substance: LORATADINE

REACTIONS (1)
  - Central venous catheterisation [Unknown]
